FAERS Safety Report 13871872 (Version 1)
Quarter: 2017Q3

REPORT INFORMATION
  Report Type: Spontaneous
  Country: CZ (occurrence: CZ)
  Receive Date: 20170816
  Receipt Date: 20170816
  Transmission Date: 20171127
  Serious: Yes (Hospitalization)
  Sender: FDA-Public Use
  Company Number: CZ-009507513-1404CZE011670

PATIENT
  Age: 73 Year
  Sex: Female

DRUGS (3)
  1. ATORVASTATIN [Suspect]
     Active Substance: ATORVASTATIN
     Indication: HYPERCHOLESTEROLAEMIA
     Dosage: 20MG,UNK FOR 24 MONTHS
  2. FENOFIBRATE. [Suspect]
     Active Substance: FENOFIBRATE
     Indication: HYPERCHOLESTEROLAEMIA
     Dosage: 200MH 12 MONTHS
  3. SIMVASTATIN. [Suspect]
     Active Substance: SIMVASTATIN
     Indication: HYPERCHOLESTEROLAEMIA
     Dosage: 20 MG, FOR 36 MONTHS

REACTIONS (1)
  - Polymyositis [Recovering/Resolving]
